FAERS Safety Report 11771899 (Version 6)
Quarter: 2016Q1

REPORT INFORMATION
  Report Type: Spontaneous
  Country: US (occurrence: US)
  Receive Date: 20151124
  Receipt Date: 20160218
  Transmission Date: 20160525
  Serious: Yes (Hospitalization)
  Sender: FDA-Public Use
  Company Number: US-ACTAVIS-2015-25593

PATIENT
  Age: 55 Year
  Sex: Male

DRUGS (13)
  1. CYCLOPHOSPHAMIDE (UNKNOWN) [Suspect]
     Active Substance: CYCLOPHOSPHAMIDE
     Indication: BURKITT^S LYMPHOMA
     Dosage: R-CODOX-M REGIMEN, CYCLICAL
     Route: 065
  2. METHOTREXATE (METHOTREXATE SODIUM) [Suspect]
     Active Substance: METHOTREXATE SODIUM
     Indication: BURKITT^S LYMPHOMA
     Dosage: R-CODOX-M REGIMEN, CYCLICAL
     Route: 065
  3. MESNA. [Suspect]
     Active Substance: MESNA
     Indication: BURKITT^S LYMPHOMA
     Dosage: R-IV AC PORTION OF THE CHEMOTHERAPY REGIMEN, CYCLICAL
     Route: 065
  4. ZIPRASIDONE. [Concomitant]
     Active Substance: ZIPRASIDONE
     Dosage: TITRATING TO A TARGET DOSE OF 80 MG BY MOUTH TWICE DAILY
     Route: 048
  5. DOXORUBICIN HYDROCHLORIDE (ACTAVIS INC) [Suspect]
     Active Substance: DOXORUBICIN HYDROCHLORIDE
     Indication: BURKITT^S LYMPHOMA
     Dosage: R-CODOX-M REGIMEN, CYCLICAL
     Route: 065
  6. ETOPOSIDE (WATSON LABORATORIES) [Suspect]
     Active Substance: ETOPOSIDE
     Indication: BURKITT^S LYMPHOMA
     Dosage: R-IV AC PORTION OF THE CHEMOTHERAPY REGIMEN, CYCLICAL
     Route: 065
  7. IFOSFAMIDE. [Suspect]
     Active Substance: IFOSFAMIDE
     Indication: BURKITT^S LYMPHOMA
     Dosage: R-IV AC PORTION OF THE CHEMOTHERAPY REGIMEN, CYCLICAL
     Route: 065
  8. VINCRISTINE (UNKNOWN) [Suspect]
     Active Substance: VINCRISTINE
     Indication: BURKITT^S LYMPHOMA
     Dosage: R-CODOX-M REGIMEN, CYCLICAL
     Route: 065
  9. CYTARABINE (UNKNOWN) [Suspect]
     Active Substance: CYTARABINE
     Indication: BURKITT^S LYMPHOMA
     Dosage: R-CODOX-M REGIMEN, CYCLICAL
     Route: 065
  10. CLOZAPINE (UNKNOWN) [Suspect]
     Active Substance: CLOZAPINE
     Indication: SCHIZOAFFECTIVE DISORDER
     Dosage: 250 MG, DAILY
     Route: 065
     Dates: start: 2001
  11. GRANULOCYTE COLONY STIMULATING FACTOR [Concomitant]
     Active Substance: GRANULOCYTE COLONY-STIMULATING FACTOR NOS
     Indication: BURKITT^S LYMPHOMA
     Dosage: WITH THE R-CODOX-M REGIMEN, CYCLICAL
     Route: 065
  12. RITUXIMAB [Suspect]
     Active Substance: RITUXIMAB
     Indication: BURKITT^S LYMPHOMA
     Dosage: R-CODOX-M REGIMEN, CYCLICAL
     Route: 065
  13. ZIPRASIDONE. [Concomitant]
     Active Substance: ZIPRASIDONE
     Indication: SCHIZOAFFECTIVE DISORDER
     Dosage: 60 MG, DAILY
     Route: 065
     Dates: start: 2001

REACTIONS (3)
  - Febrile neutropenia [Unknown]
  - Agranulocytosis [Unknown]
  - Sepsis [Unknown]
